FAERS Safety Report 4579413-3 (Version None)
Quarter: 2005Q1

REPORT INFORMATION
  Report Type: 
  Country: None (occurrence: None)
  Receive Date: 20050209
  Receipt Date: 20050121
  Transmission Date: 20050727
  Serious: No
  Sender: FDA-Public Use
  Company Number: US_0411108285

PATIENT
  Age: 8 Year
  Sex: Female

DRUGS (3)
  1. STRATTERA [Suspect]
     Indication: ATTENTION DEFICIT/HYPERACTIVITY DISORDER
     Dosage: 40 MG
     Dates: start: 20041115
  2. BROMPHENIRAMINE [Concomitant]
  3. ACETAMINOPHEN [Concomitant]

REACTIONS (3)
  - LISTLESS [None]
  - SKIN DISCOLOURATION [None]
  - SWELLING FACE [None]
